FAERS Safety Report 5626797-0 (Version None)
Quarter: 2008Q1

REPORT INFORMATION
  Report Type: 
  Country: None (occurrence: None)
  Receive Date: 20080214
  Receipt Date: 20080207
  Transmission Date: 20080703
  Serious: Yes (Other)
  Sender: FDA-Public Use
  Company Number: BR-PFIZER INC-2008012743

PATIENT
  Sex: Male

DRUGS (5)
  1. TOLTERODINE TARTRATE [Suspect]
     Indication: HYPERTONIC BLADDER
     Route: 048
     Dates: start: 20070901, end: 20071001
  2. LORAZEPAM [Concomitant]
     Dates: start: 19980101
  3. CITALOPRAM HYDROBROMIDE [Concomitant]
     Dates: start: 20040101
  4. LOSARTAN POTASSIUM [Concomitant]
     Dates: start: 20050101
  5. ANCORON [Concomitant]
     Dates: start: 20060101

REACTIONS (2)
  - NEURODEGENERATIVE DISORDER [None]
  - RESPIRATORY FAILURE [None]
